FAERS Safety Report 25437321 (Version 1)
Quarter: 2025Q2

REPORT INFORMATION
  Report Type: Spontaneous
  Country: CA (occurrence: CA)
  Receive Date: 20250616
  Receipt Date: 20250616
  Transmission Date: 20250716
  Serious: Yes (Hospitalization)
  Sender: ALEXION PHARMACEUTICALS
  Company Number: None

PATIENT
  Age: 75 Year

DRUGS (1)
  1. CRESTOR [Suspect]
     Active Substance: ROSUVASTATIN CALCIUM
     Indication: Product used for unknown indication
     Dosage: 5 MILLIGRAM, QD
     Route: 065

REACTIONS (6)
  - Acute kidney injury [Recovering/Resolving]
  - Fall [Recovering/Resolving]
  - Muscular weakness [Recovering/Resolving]
  - Myositis [Recovering/Resolving]
  - Oliguria [Recovering/Resolving]
  - Rhabdomyolysis [Recovering/Resolving]
